FAERS Safety Report 4514330-6 (Version None)
Quarter: 2004Q4

REPORT INFORMATION
  Report Type: 
  Country: None (occurrence: None)
  Receive Date: 20040928
  Receipt Date: 20040706
  Transmission Date: 20050328
  Serious: No
  Sender: FDA-Public Use
  Company Number: 04P-163-0266262-00

PATIENT
  Age: 75 Year
  Sex: Female
  Weight: 65.7716 kg

DRUGS (4)
  1. HUMIRA [Suspect]
     Indication: RHEUMATOID ARTHRITIS
     Dosage: 40 MG, 1 IN 2 WK, SUBCUTANEOUS
     Route: 058
     Dates: start: 20040401
  2. VICODIN [Concomitant]
  3. PREDNISONE [Concomitant]
  4. CYPROHEPTADINE HYDROCHLORIDE [Concomitant]

REACTIONS (7)
  - BACK DISORDER [None]
  - DRUG INEFFECTIVE [None]
  - FACE OEDEMA [None]
  - NERVOUSNESS [None]
  - OEDEMA PERIPHERAL [None]
  - POLLAKIURIA [None]
  - WEIGHT INCREASED [None]
